FAERS Safety Report 11825885 (Version 1)
Quarter: 2015Q4

REPORT INFORMATION
  Report Type: Spontaneous
  Country: US (occurrence: US)
  Receive Date: 20151211
  Receipt Date: 20151211
  Transmission Date: 20160305
  Serious: Yes (Hospitalization, Other)
  Sender: FDA-Public Use
  Company Number: US-009507513-1512USA004997

PATIENT
  Age: 62 Year
  Sex: Male

DRUGS (9)
  1. CLARITIN [Concomitant]
     Active Substance: LORATADINE
  2. JANUVIA [Suspect]
     Active Substance: SITAGLIPTIN PHOSPHATE
     Indication: TYPE 2 DIABETES MELLITUS
     Dosage: 1 TABLET, ONCE A DAY
     Route: 048
     Dates: end: 20151204
  3. ZETIA [Concomitant]
     Active Substance: EZETIMIBE
  4. GLYBURIDE. [Concomitant]
     Active Substance: GLYBURIDE
  5. ASPIRIN. [Concomitant]
     Active Substance: ASPIRIN
  6. METFORMIN [Concomitant]
     Active Substance: METFORMIN HYDROCHLORIDE
  7. PRILOSEC [Concomitant]
     Active Substance: OMEPRAZOLE MAGNESIUM
  8. LISINOPRIL. [Concomitant]
     Active Substance: LISINOPRIL
  9. ICAPS [Concomitant]
     Active Substance: MINERALS\VITAMINS

REACTIONS (2)
  - White blood cell count abnormal [Recovered/Resolved]
  - Pancreatitis [Recovered/Resolved]

NARRATIVE: CASE EVENT DATE: 20151202
